FAERS Safety Report 19148590 (Version 1)
Quarter: 2021Q2

REPORT INFORMATION
  Report Type: Report from Study
  Country: BR (occurrence: BR)
  Receive Date: 20210416
  Receipt Date: 20210416
  Transmission Date: 20210717
  Serious: Yes (Death, Hospitalization)
  Sender: FDA-Public Use
  Company Number: BR-UCBSA-2021009576

PATIENT
  Age: 61 Year
  Sex: Female
  Weight: 88 kg

DRUGS (5)
  1. METFORMINA [METFORMIN] [Concomitant]
     Active Substance: METFORMIN HYDROCHLORIDE
     Indication: DIABETES MELLITUS
  2. LOSARTAN. [Concomitant]
     Active Substance: LOSARTAN
     Indication: HYPERTENSION
     Dosage: 50 MILLIGRAM, UNK
     Route: 048
     Dates: start: 2016
  3. FLEXALGIN [Concomitant]
     Indication: ANALGESIC THERAPY
     Dosage: 300 MILLIGRAM, UNK
     Route: 048
  4. CERTOLIZUMAB PEGOL RA [Suspect]
     Active Substance: CERTOLIZUMAB PEGOL
     Indication: RHEUMATOID ARTHRITIS
     Dosage: 400 MILLIGRAM, EV 30 DAYS
     Route: 058
     Dates: start: 20201117, end: 20210322
  5. DIPIRONA [Concomitant]
     Active Substance: METAMIZOLE
     Indication: ABDOMINAL PAIN UPPER
     Dosage: 20 DROP, 2X/DAY (BID)
     Route: 048
     Dates: start: 2020

REACTIONS (6)
  - Systemic infection [Fatal]
  - Mass [Unknown]
  - Arthralgia [Not Recovered/Not Resolved]
  - Abdominal pain upper [Not Recovered/Not Resolved]
  - Hepatic steatosis [Unknown]
  - Therapeutic response decreased [Unknown]

NARRATIVE: CASE EVENT DATE: 20210201
